FAERS Safety Report 9989532 (Version 1)
Quarter: 2014Q1

REPORT INFORMATION
  Report Type: Report from Study
  Country: US (occurrence: US)
  Receive Date: 20140310
  Receipt Date: 20140310
  Transmission Date: 20141002
  Serious: No
  Sender: FDA-Public Use
  Company Number: US-ABBVIE-13P-163-1130323-00

PATIENT
  Age: 54 Year
  Sex: Female

DRUGS (12)
  1. HUMIRA [Suspect]
     Indication: COLITIS ULCERATIVE
     Dates: start: 20130708
  2. HUMIRA [Suspect]
     Dates: start: 20130722
  3. HUMIRA [Suspect]
     Dates: start: 20130805
  4. LIALDA [Concomitant]
     Indication: COLITIS ULCERATIVE
     Dosage: 1.2 GRAM
  5. VITAMIN D [Concomitant]
     Indication: PRODUCT USED FOR UNKNOWN INDICATION
     Dosage: 2000 IU DAILY
     Route: 048
  6. METHOTREXATE [Concomitant]
     Indication: RHEUMATOID ARTHRITIS
     Dosage: 6 TABS WEEKLY
  7. FOLIC ACID [Concomitant]
     Indication: PRODUCT USED FOR UNKNOWN INDICATION
     Route: 048
  8. FISH OIL [Concomitant]
     Indication: PRODUCT USED FOR UNKNOWN INDICATION
     Dosage: DAILY
  9. LEVOTHYROXIN [Concomitant]
     Indication: THYROID DISORDER
     Dosage: 100 MIROGRAM DAILY
  10. SERTRALINE [Concomitant]
     Indication: DEPRESSION
     Route: 048
  11. OMEPRAZOLE [Concomitant]
     Indication: GASTRIC DISORDER
  12. BUDESONIDE [Concomitant]
     Indication: PROPHYLAXIS
     Dosage: SPRAY
     Route: 045

REACTIONS (3)
  - Eye pain [Recovered/Resolved]
  - Headache [Recovered/Resolved]
  - Headache [Recovered/Resolved]
